FAERS Safety Report 13404038 (Version 1)
Quarter: 2017Q2

REPORT INFORMATION
  Report Type: Spontaneous
  Country: US (occurrence: US)
  Receive Date: 20170405
  Receipt Date: 20170405
  Transmission Date: 20170830
  Serious: No
  Sender: FDA-Public Use
  Company Number: None

PATIENT

DRUGS (2)
  1. CAFFEINE CITRATE CAFFEINE CITRATE [Suspect]
     Active Substance: CAFFEINE CITRATE
     Route: 048
  2. CAFFEINE CITRATE CAFFEINE CITRATE [Suspect]
     Active Substance: CAFFEINE CITRATE
     Route: 042

REACTIONS (1)
  - Product packaging confusion [None]
